FAERS Safety Report 5091129-6 (Version None)
Quarter: 2006Q3

REPORT INFORMATION
  Report Type: 
  Country: None (occurrence: None)
  Receive Date: 20060829
  Receipt Date: 20060807
  Transmission Date: 20061208
  Serious: Yes (Death, Hospitalization)
  Sender: FDA-Public Use
  Company Number: JP-BAYER-200613398GDS

PATIENT
  Age: 68 Year
  Sex: Male

DRUGS (5)
  1. 8-HOUR BAYER [Suspect]
     Indication: PLATELET AGGREGATION INHIBITION
     Route: 048
     Dates: end: 20060115
  2. RENIVEZE [Concomitant]
     Indication: DRUG USE FOR UNKNOWN INDICATION
     Route: 048
     Dates: end: 20060115
  3. LIPITOR [Concomitant]
     Indication: DRUG USE FOR UNKNOWN INDICATION
     Route: 048
     Dates: end: 20060115
  4. CALSLOT [Concomitant]
     Indication: DRUG USE FOR UNKNOWN INDICATION
     Route: 048
     Dates: end: 20060115
  5. ARTIST [Concomitant]
     Indication: DRUG USE FOR UNKNOWN INDICATION
     Route: 048
     Dates: end: 20060115

REACTIONS (5)
  - BRAIN HERNIATION [None]
  - CEREBRAL HAEMORRHAGE [None]
  - DEPRESSED LEVEL OF CONSCIOUSNESS [None]
  - HEADACHE [None]
  - VOMITING [None]
